FAERS Safety Report 20646492 (Version 2)
Quarter: 2022Q3

REPORT INFORMATION
  Report Type: Spontaneous
  Country: US (occurrence: US)
  Receive Date: 20220329
  Receipt Date: 20220704
  Transmission Date: 20221026
  Serious: No
  Sender: FDA-Public Use
  Company Number: US-BRISTOL-MYERS SQUIBB COMPANY-2022-011054

PATIENT
  Age: 75 Year
  Sex: Female
  Weight: 73.48 kg

DRUGS (12)
  1. REVLIMID [Suspect]
     Active Substance: LENALIDOMIDE
     Indication: Plasma cell myeloma
     Dosage: QD14DON7DOFF
     Route: 048
  2. TYLENOL [Concomitant]
     Active Substance: ACETAMINOPHEN
     Indication: Product used for unknown indication
     Route: 065
  3. ASPIRIN [Concomitant]
     Active Substance: ASPIRIN
  4. COLACE [Concomitant]
     Active Substance: DOCUSATE SODIUM
  5. FLONASE [Concomitant]
     Active Substance: FLUTICASONE PROPIONATE
  6. HYDRALAZINE [HYDRALAZINE HYDROCHLORIDE] [Concomitant]
  7. LOPRESSOR [Concomitant]
     Active Substance: METOPROLOL TARTRATE
  8. PROTONIX [Concomitant]
     Active Substance: PANTOPRAZOLE SODIUM
  9. MIRALAX [Concomitant]
     Active Substance: POLYETHYLENE GLYCOL 3350
  10. VALACYCLOVIR [Concomitant]
     Active Substance: VALACYCLOVIR HYDROCHLORIDE
  11. VELCADE [Concomitant]
     Active Substance: BORTEZOMIB
  12. VITAMIN C [Concomitant]
     Active Substance: ASCORBIC ACID

REACTIONS (2)
  - Diarrhoea [Unknown]
  - Constipation [Not Recovered/Not Resolved]
